FAERS Safety Report 16968801 (Version 1)
Quarter: 2019Q4

REPORT INFORMATION
  Report Type: Spontaneous
  Country: GB (occurrence: GB)
  Receive Date: 20191029
  Receipt Date: 20191029
  Transmission Date: 20200122
  Serious: Yes (Disabling, Other)
  Sender: FDA-Public Use
  Company Number: GB-TEVA-2019-GB-1127739

PATIENT
  Age: 60 Year
  Sex: Female
  Weight: 60 kg

DRUGS (3)
  1. FENOFIBRATE. [Concomitant]
     Active Substance: FENOFIBRATE
     Dates: start: 201802, end: 201906
  2. PRAVASTATIN. [Concomitant]
     Active Substance: PRAVASTATIN
     Dates: end: 201908
  3. NITROFURANTOIN. [Suspect]
     Active Substance: NITROFURANTOIN
     Indication: URINARY TRACT INFECTION
     Dosage: 100 MG
     Route: 048
     Dates: start: 20190918, end: 20190919

REACTIONS (3)
  - Nausea [Unknown]
  - Headache [Unknown]
  - Muscular weakness [Unknown]
